FAERS Safety Report 20039919 (Version 1)
Quarter: 2021Q4

REPORT INFORMATION
  Report Type: Other
  Country: US (occurrence: None)
  Receive Date: 20211106
  Receipt Date: 20211106
  Transmission Date: 20220303
  Serious: Yes (Other)
  Sender: FDA-Public Use
  Company Number: US-ROCHE-2946368

PATIENT
  Sex: Female

DRUGS (1)
  1. OCREVUS [Suspect]
     Active Substance: OCRELIZUMAB
     Indication: Multiple sclerosis
     Dosage: INFUSE 20ML (600MG) INTRAVENOUSLY EVERY 6 MONTH(S)?DATE OF TREATMENT:19/APR/2021, 21/APR/2021
     Route: 042

REACTIONS (1)
  - Multiple sclerosis relapse [Unknown]
